FAERS Safety Report 17080781 (Version 1)
Quarter: 2019Q4

REPORT INFORMATION
  Report Type: Spontaneous
  Country: US (occurrence: US)
  Receive Date: 20191029
  Receipt Date: 20191029
  Transmission Date: 20200122
  Serious: Yes (Disabling)
  Sender: FDA-Public Use
  Company Number: None

PATIENT
  Age: 80 Year
  Sex: Female
  Weight: 66.22 kg

DRUGS (2)
  1. RANITIDINE HYDROCHLORIDE CAPSULES [Suspect]
     Active Substance: RANITIDINE HYDROCHLORIDE
     Indication: GASTROOESOPHAGEAL REFLUX DISEASE
     Dosage: ?          QUANTITY:150 MG MILLIGRAM(S);?
     Route: 048
     Dates: start: 2011, end: 20181025
  2. LANTAPROST DROPS [Concomitant]

REACTIONS (7)
  - Dyspepsia [None]
  - Weight decreased [None]
  - Fatigue [None]
  - Diarrhoea [None]
  - Abdominal pain upper [None]
  - Vomiting [None]
  - Middle insomnia [None]

NARRATIVE: CASE EVENT DATE: 20181025
